FAERS Safety Report 15076366 (Version 7)
Quarter: 2019Q1

REPORT INFORMATION
  Report Type: Spontaneous
  Country: US (occurrence: US)
  Receive Date: 20180627
  Receipt Date: 20190227
  Transmission Date: 20190417
  Serious: No
  Sender: FDA-Public Use
  Company Number: US-VERTEX PHARMACEUTICALS-2018-003881

PATIENT
  Age: 36 Year
  Sex: Male
  Weight: 80 kg

DRUGS (23)
  1. CALCIUM + D3                       /00944201/ [Concomitant]
     Active Substance: CALCIUM CARBONATE\CHOLECALCIFEROL
     Dosage: UNK UNK, BID
  2. VITAMIN D                          /00107901/ [Concomitant]
     Active Substance: ERGOCALCIFEROL
     Dosage: UNK UNK, QD
  3. HYPERSAL [Concomitant]
     Dosage: 4 MILLILITER, BID
     Route: 055
  4. MEPHYTON [Concomitant]
     Active Substance: PHYTONADIONE
     Dosage: 1 DOSAGE FORM ONCE A WEEK
     Route: 048
  5. ALBUTEROL                          /00139501/ [Concomitant]
     Active Substance: ALBUTEROL
     Dosage: 2.5 MG/3 ML (2.5 MG, BID), QID
     Route: 055
  6. IBUPROFEN. [Concomitant]
     Active Substance: IBUPROFEN
     Indication: SINUSITIS
     Dosage: UNK
     Dates: start: 2018
  7. ALBUTEROL SULFATE. [Concomitant]
     Active Substance: ALBUTEROL SULFATE
     Dosage: 1 DOSAGE FORM, QD FOR 30 DAYS
     Route: 048
  8. FLUTICASONE. [Concomitant]
     Active Substance: FLUTICASONE
     Dosage: 2 SPRAY, QD
     Route: 045
  9. CHOLECALCIFEROL [Concomitant]
     Active Substance: CHOLECALCIFEROL
     Dosage: 1 DOSAGE FORM, QD
     Route: 048
  10. ALBUTEROL                          /00139501/ [Concomitant]
     Active Substance: ALBUTEROL
     Dosage: 90 MCG/INHALATION (2-4 PUFFS), QID AS NEEDED
     Route: 055
  11. BETA CAROTENE [Concomitant]
     Dosage: 1 DOSAGE FORM, QD
     Route: 048
  12. PROAIR HFA [Concomitant]
     Active Substance: ALBUTEROL SULFATE
  13. MACROLID-S [Concomitant]
  14. CAYSTON [Concomitant]
     Active Substance: AZTREONAM
     Dosage: 75 MG, TID INHALED VIA ALTERA SVN EVERY 28 DAYS EVERY OTHER MONTH
     Route: 055
  15. CREON [Concomitant]
     Active Substance: PANCRELIPASE AMYLASE\PANCRELIPASE LIPASE\PANCRELIPASE PROTEASE
     Dosage: 5-6 CAP(S) WITH MEALS 3 TIMES A DAY AND 3-4 CAPS WITH SNACKS, TID
     Route: 048
  16. AZTREONAM. [Concomitant]
     Active Substance: AZTREONAM
  17. SYMDEKO [Suspect]
     Active Substance: IVACAFTOR\TEZACAFTOR
     Indication: CYSTIC FIBROSIS
     Dosage: 100MG TEZACAFTOR/150MG IVACAFTOR AM; 150MG IVACAFTOR PM
     Route: 048
     Dates: start: 20180404, end: 201810
  18. AZITHROMYCIN ANHYDROUS. [Concomitant]
     Active Substance: AZITHROMYCIN ANHYDROUS
     Dosage: 1 DOSAGE FORM, QD
  19. POLYETHYLENE GLYCOL 3350. [Concomitant]
     Active Substance: POLYETHYLENE GLYCOL 3350
     Dosage: MIX 1 CAPFUL WITH 8 OZ OF WATER AND DRINK, QD
     Route: 048
  20. PULMOZYME [Concomitant]
     Active Substance: DORNASE ALFA
     Dosage: 2.5 MILLILITER, QD
     Route: 055
  21. VITAMIN E                          /00110501/ [Concomitant]
     Active Substance: TOCOPHEROL
     Dosage: 2 DOSAGE FORM, QD
     Route: 048
  22. ASCORBIC ACID. [Concomitant]
     Active Substance: ASCORBIC ACID
     Dosage: 1 DOSAGE FORM, BID
     Route: 048
  23. CALCIUM 600 + D [Concomitant]
     Active Substance: CALCIUM\VITAMIN D
     Dosage: 1 DOSAGE FORM, BID
     Route: 048

REACTIONS (11)
  - Rash erythematous [Recovering/Resolving]
  - Feeling hot [Unknown]
  - Blood alkaline phosphatase increased [Recovering/Resolving]
  - Nausea [Recovered/Resolved]
  - Fatigue [Recovering/Resolving]
  - Balance disorder [Unknown]
  - Alanine aminotransferase increased [Recovering/Resolving]
  - Chest discomfort [Recovered/Resolved]
  - Asthenopia [Recovering/Resolving]
  - Sinusitis [Unknown]
  - Aspartate aminotransferase increased [Recovering/Resolving]

NARRATIVE: CASE EVENT DATE: 201804
